FAERS Safety Report 13732839 (Version 1)
Quarter: 2017Q3

REPORT INFORMATION
  Report Type: Spontaneous
  Country: US (occurrence: US)
  Receive Date: 20170707
  Receipt Date: 20170707
  Transmission Date: 20171127
  Serious: Yes (Other)
  Sender: FDA-Public Use
  Company Number: US-NATCO PHARMA-2017NAT00044

PATIENT
  Sex: Male

DRUGS (1)
  1. OSELTAMIVIR PHOSPHATE. [Suspect]
     Active Substance: OSELTAMIVIR PHOSPHATE

REACTIONS (3)
  - Insomnia [Recovering/Resolving]
  - Hallucination [Recovering/Resolving]
  - Arthralgia [Recovering/Resolving]
